FAERS Safety Report 16565909 (Version 8)
Quarter: 2023Q2

REPORT INFORMATION
  Report Type: Spontaneous
  Country: US (occurrence: US)
  Receive Date: 20190712
  Receipt Date: 20230510
  Transmission Date: 20230722
  Serious: No
  Sender: FDA-Public Use
  Company Number: US-PFIZER INC-2019296116

PATIENT
  Age: 60 Year
  Sex: Male
  Weight: 92.99 kg

DRUGS (5)
  1. LORBRENA [Suspect]
     Active Substance: LORLATINIB
     Indication: Non-small cell lung cancer stage IV
     Dosage: 100 MG, DAILY
     Route: 048
     Dates: start: 20190403
  2. LORBRENA [Suspect]
     Active Substance: LORLATINIB
     Dosage: 225 MG, 1X/DAY (TK 3 T PO (ORAL) QD (ONCE A DAY)
     Route: 048
  3. LORBRENA [Suspect]
     Active Substance: LORLATINIB
     Dosage: 100 MG, CYCLIC(21 CONSECUTIVE DAYS FOLLOWED BY 7 DAYS OFF )
     Route: 048
  4. ATORVASTATIN [Concomitant]
     Active Substance: ATORVASTATIN
     Dosage: 40 MG (1 TABLET), DAILY
     Dates: start: 20190726
  5. GABAPENTIN [Concomitant]
     Active Substance: GABAPENTIN
     Dosage: 600 MG (2 TABLETS), DAILY
     Dates: start: 20190726

REACTIONS (5)
  - Hypoaesthesia [Not Recovered/Not Resolved]
  - Peripheral swelling [Not Recovered/Not Resolved]
  - Carpal tunnel syndrome [Unknown]
  - Off label use [Unknown]
  - Product use issue [Unknown]

NARRATIVE: CASE EVENT DATE: 20190701
